FAERS Safety Report 7812018-7 (Version None)
Quarter: 2011Q4

REPORT INFORMATION
  Report Type: 
  Country: None (occurrence: None)
  Receive Date: 20111013
  Receipt Date: 20111005
  Transmission Date: 20120403
  Serious: Yes (Other)
  Sender: FDA-Public Use
  Company Number: CH-BAXTER-2011BH031657

PATIENT
  Age: 53 Year
  Sex: Female

DRUGS (5)
  1. PACLITAXEL [Suspect]
     Indication: BREAST CANCER
     Route: 041
     Dates: start: 20100201, end: 20100401
  2. FEMARA [Suspect]
     Indication: BREAST CANCER
     Route: 048
     Dates: start: 20100401, end: 20110701
  3. FLUOROURACIL [Suspect]
     Indication: BREAST CANCER
     Route: 041
     Dates: start: 20091201, end: 20100201
  4. CYCLOPHOSPHAMIDE [Suspect]
     Indication: BREAST CANCER
     Route: 041
     Dates: start: 20091201, end: 20100201
  5. EPIRUBICIN HYDROCHLORIDE [Suspect]
     Indication: BREAST CANCER
     Route: 041
     Dates: start: 20091201, end: 20100201

REACTIONS (1)
  - SARCOIDOSIS [None]
